FAERS Safety Report 16603678 (Version 1)
Quarter: 2019Q3

REPORT INFORMATION
  Report Type: Spontaneous
  Country: FR (occurrence: FR)
  Receive Date: 20190721
  Receipt Date: 20190721
  Transmission Date: 20191004
  Serious: Yes (Hospitalization)
  Sender: FDA-Public Use
  Company Number: FR-TEVA-2019-FR-1078865

PATIENT
  Age: 46 Year
  Sex: Male

DRUGS (2)
  1. ACTIQ [Suspect]
     Active Substance: FENTANYL CITRATE
     Indication: PRODUCT USED FOR UNKNOWN INDICATION
     Dosage: 400 MICROGRAM
     Route: 002
     Dates: start: 2018
  2. DUROGESIC [Suspect]
     Active Substance: FENTANYL
     Dosage: 75 MICROGRAM
     Route: 062
     Dates: start: 2018

REACTIONS (2)
  - Drug dependence [Recovering/Resolving]
  - Withdrawal syndrome [Recovering/Resolving]

NARRATIVE: CASE EVENT DATE: 2019
